FAERS Safety Report 10157300 (Version 1)
Quarter: 2014Q2

REPORT INFORMATION
  Report Type: Spontaneous
  Country: US (occurrence: US)
  Receive Date: 20140507
  Receipt Date: 20140507
  Transmission Date: 20141212
  Serious: No
  Sender: FDA-Public Use
  Company Number: US-TEVA-480282USA

PATIENT
  Age: 49 Year
  Sex: Female
  Weight: 49.94 kg

DRUGS (6)
  1. PLAN B ONE-STEP [Suspect]
     Indication: POST COITAL CONTRACEPTION
     Dosage: 1.5 MILLIGRAM DAILY;
     Route: 048
     Dates: start: 20140331, end: 20140331
  2. MULTIVITAMIN [Concomitant]
     Indication: VITAMIN SUPPLEMENTATION
  3. FLAXSEED OIL [Concomitant]
     Indication: SUPPLEMENTATION THERAPY
  4. CALCIUM [Concomitant]
     Indication: MINERAL SUPPLEMENTATION
  5. MAGNESIUM [Concomitant]
     Indication: MINERAL SUPPLEMENTATION
  6. ZINC [Concomitant]
     Indication: MINERAL SUPPLEMENTATION

REACTIONS (1)
  - Menstruation delayed [Not Recovered/Not Resolved]
